FAERS Safety Report 18100034 (Version 1)
Quarter: 2020Q3

REPORT INFORMATION
  Report Type: Spontaneous
  Country: CA (occurrence: CA)
  Receive Date: 20200731
  Receipt Date: 20200731
  Transmission Date: 20201103
  Serious: Yes (Other)
  Sender: FDA-Public Use
  Company Number: CA-ASTRAZENECA-2020SE93093

PATIENT
  Age: 24027 Day
  Sex: Female

DRUGS (4)
  1. SYMBICORT [Suspect]
     Active Substance: BUDESONIDE\FORMOTEROL FUMARATE DIHYDRATE
     Indication: ASTHMA
     Dosage: 200 UG, UNKNOWN UNKNOWN
     Route: 055
     Dates: start: 20150415
  2. DILTIAZEM. [Concomitant]
     Active Substance: DILTIAZEM
     Dosage: 240.0MG UNKNOWN
     Route: 065
     Dates: start: 20150415
  3. VIT D [Concomitant]
     Active Substance: VITAMIN D NOS
     Dosage: 2000 U
     Route: 065
  4. HCZ [Concomitant]
     Indication: BLOOD PRESSURE MEASUREMENT
     Dosage: 25.0MG UNKNOWN
     Route: 065
     Dates: start: 20150415

REACTIONS (3)
  - Drug ineffective [Unknown]
  - Panic attack [Unknown]
  - Asthma [Recovering/Resolving]

NARRATIVE: CASE EVENT DATE: 20200717
